FAERS Safety Report 19055864 (Version 2)
Quarter: 2021Q2

REPORT INFORMATION
  Report Type: Report from Study
  Country: US (occurrence: US)
  Receive Date: 20210324
  Receipt Date: 20210504
  Transmission Date: 20210717
  Serious: Yes (Hospitalization)
  Sender: FDA-Public Use
  Company Number: US-BRISTOL-MYERS SQUIBB COMPANY-BMS-2021-028178

PATIENT
  Age: 79 Year
  Sex: Male
  Weight: 85.9 kg

DRUGS (2)
  1. NIVOLUMAB [Suspect]
     Active Substance: NIVOLUMAB
     Indication: RENAL CELL CARCINOMA
     Dosage: 258 MILLIGRAM
     Route: 065
     Dates: end: 20210204
  2. IPILIMUMAB [Suspect]
     Active Substance: IPILIMUMAB
     Indication: RENAL CELL CARCINOMA
     Dosage: 86 MILLIGRAM
     Route: 065
     Dates: start: 20210204, end: 20210204

REACTIONS (1)
  - Hypercalcaemia [Recovered/Resolved with Sequelae]

NARRATIVE: CASE EVENT DATE: 20210225
